FAERS Safety Report 10206372 (Version 1)
Quarter: 2014Q2

REPORT INFORMATION
  Report Type: Spontaneous
  Country: DE (occurrence: DE)
  Receive Date: 20140530
  Receipt Date: 20140530
  Transmission Date: 20141212
  Serious: No
  Sender: FDA-Public Use
  Company Number: DE-JNJFOC-20140512039

PATIENT
  Sex: Female

DRUGS (1)
  1. DUROGESIC SMAT [Suspect]
     Indication: FIBROMYALGIA
     Route: 062

REACTIONS (2)
  - Wrong technique in drug usage process [Unknown]
  - Pain [Unknown]
